FAERS Safety Report 4640359-3 (Version None)
Quarter: 2005Q2

REPORT INFORMATION
  Report Type: 
  Country: None (occurrence: None)
  Receive Date: 20050420
  Receipt Date: 20040830
  Transmission Date: 20051028
  Serious: No
  Sender: FDA-Public Use
  Company Number: US-GLAXOSMITHKLINE-A0523758A

PATIENT
  Age: 56 Year
  Sex: Female

DRUGS (5)
  1. ESKALITH [Suspect]
     Indication: DEPRESSION
     Dosage: 900MG PER DAY
     Route: 048
     Dates: start: 20031101
  2. ESKALITH CR [Suspect]
     Indication: DEPRESSION
     Dosage: 450MG PER DAY
     Route: 048
     Dates: start: 20031101, end: 20040908
  3. ATIVAN [Concomitant]
  4. PROZAC [Concomitant]
  5. AMBIEN [Concomitant]

REACTIONS (11)
  - BURNING SENSATION [None]
  - DIARRHOEA [None]
  - DRY EYE [None]
  - DRY MOUTH [None]
  - DRY SKIN [None]
  - ERYTHEMA OF EYELID [None]
  - EYE IRRITATION [None]
  - ORAL DISCOMFORT [None]
  - TREMOR [None]
  - WEIGHT DECREASED [None]
  - WEIGHT INCREASED [None]
